FAERS Safety Report 22250195 (Version 1)
Quarter: 2023Q2

REPORT INFORMATION
  Report Type: Spontaneous
  Country: US (occurrence: None)
  Receive Date: 20230422
  Receipt Date: 20230422
  Transmission Date: 20230721
  Serious: Yes (Hospitalization)
  Sender: FDA-Public Use
  Company Number: None

PATIENT
  Sex: Female

DRUGS (2)
  1. OPSUMIT [Suspect]
     Active Substance: MACITENTAN
     Indication: Pulmonary arterial hypertension
     Dosage: FREQUENCY : DAILY;?
     Route: 048
     Dates: start: 201809
  2. ADEMPAS [Suspect]
     Active Substance: RIOCIGUAT

REACTIONS (5)
  - Therapy interrupted [None]
  - Cardiac operation [None]
  - Hypervolaemia [None]
  - Catheterisation cardiac abnormal [None]
  - Intracardiac pressure increased [None]
